FAERS Safety Report 11411744 (Version 2)
Quarter: 2015Q3

REPORT INFORMATION
  Report Type: Spontaneous
  Country: US (occurrence: US)
  Receive Date: 20150821
  Receipt Date: 20150903
  Transmission Date: 20151125
  Serious: No
  Sender: FDA-Public Use
  Company Number: US-ELI_LILLY_AND_COMPANY-US201102002849

PATIENT
  Age: 36 Year
  Sex: Female
  Weight: 68.48 kg

DRUGS (2)
  1. HUMULIN N [Suspect]
     Active Substance: INSULIN HUMAN
     Indication: GESTATIONAL DIABETES
     Dosage: 6 U, UNKNOWN
     Dates: start: 20110626, end: 201108
  2. HUMALOG [Suspect]
     Active Substance: INSULIN LISPRO
     Indication: GESTATIONAL DIABETES
     Dosage: UNK, AS NEEDED
     Dates: start: 201011

REACTIONS (3)
  - Injection site pain [Unknown]
  - Exposure during pregnancy [Not Recovered/Not Resolved]
  - Dermatitis allergic [Recovered/Resolved]

NARRATIVE: CASE EVENT DATE: 201011
